FAERS Safety Report 13688858 (Version 2)
Quarter: 2017Q3

REPORT INFORMATION
  Report Type: Spontaneous
  Country: US (occurrence: US)
  Receive Date: 20170626
  Receipt Date: 20170703
  Transmission Date: 20171127
  Serious: No
  Sender: FDA-Public Use
  Company Number: US-HORIZON-PRE-0237-2017

PATIENT
  Age: 77 Year
  Sex: Female

DRUGS (3)
  1. RAYOS [Suspect]
     Active Substance: PREDNISONE
     Indication: RHEUMATOID ARTHRITIS
     Dosage: 5 MG ONCE DAILY; TEMPORARY 3 MG, 2 MG
     Dates: start: 201705
  2. ALEVE [Concomitant]
     Active Substance: NAPROXEN SODIUM
     Dosage: 2 TABLETS IN THE MORNING
  3. METHOTREXATE. [Concomitant]
     Active Substance: METHOTREXATE
     Dosage: ONCE A WEEK

REACTIONS (3)
  - Abdominal pain upper [Unknown]
  - Contraindicated product administered [Unknown]
  - Intentional product use issue [Unknown]
